FAERS Safety Report 7571857-0 (Version None)
Quarter: 2011Q2

REPORT INFORMATION
  Report Type: 
  Country: None (occurrence: None)
  Receive Date: 20110624
  Receipt Date: 20110615
  Transmission Date: 20111010
  Serious: Yes (Hospitalization)
  Sender: FDA-Public Use
  Company Number: US-US-EMD SERONO, INC.-7065410

PATIENT
  Sex: Male
  Weight: 77 kg

DRUGS (6)
  1. TYLENOL-500 [Concomitant]
     Indication: PREMEDICATION
  2. OXYBUTYNIN [Concomitant]
     Indication: BLADDER DISORDER
  3. BACLOFEN [Concomitant]
     Indication: MUSCLE SPASMS
  4. REBIF [Suspect]
     Indication: MULTIPLE SCLEROSIS
     Route: 058
     Dates: start: 20110611
  5. METOPROLOL TARTRATE [Concomitant]
     Indication: HYPERTENSION
  6. MULTI-VITAMIN [Concomitant]
     Indication: SUPPLEMENTATION THERAPY

REACTIONS (5)
  - INJECTION SITE ERYTHEMA [None]
  - SEPSIS [None]
  - INJECTION SITE WARMTH [None]
  - INJECTION SITE SWELLING [None]
  - URINARY TRACT INFECTION [None]
